FAERS Safety Report 23050748 (Version 1)
Quarter: 2023Q4

REPORT INFORMATION
  Report Type: Spontaneous
  Country: US (occurrence: None)
  Receive Date: 20231010
  Receipt Date: 20231010
  Transmission Date: 20240110
  Serious: Yes (Death, Hospitalization)
  Sender: FDA-Public Use
  Company Number: 2023A228197

PATIENT
  Age: 66 Year
  Sex: Female

DRUGS (1)
  1. CILGAVIMAB\TIXAGEVIMAB [Suspect]
     Active Substance: CILGAVIMAB\TIXAGEVIMAB
     Indication: COVID-19
     Route: 030

REACTIONS (5)
  - Pneumonia cryptococcal [Fatal]
  - COVID-19 [Fatal]
  - Atrial fibrillation [Fatal]
  - Respiratory failure [Fatal]
  - Shock [Fatal]
